FAERS Safety Report 14895140 (Version 1)
Quarter: 2018Q2

REPORT INFORMATION
  Report Type: Spontaneous
  Country: US (occurrence: US)
  Receive Date: 20180515
  Receipt Date: 20180515
  Transmission Date: 20180711
  Serious: No
  Sender: FDA-Public Use
  Company Number: US-PFIZER INC-2018192415

PATIENT
  Sex: Female

DRUGS (2)
  1. CELEBREX [Suspect]
     Active Substance: CELECOXIB
     Indication: PAIN
     Dosage: 200 MG, UNK
  2. PREDNISONE. [Suspect]
     Active Substance: PREDNISONE
     Dosage: UNK

REACTIONS (2)
  - Drug ineffective [Unknown]
  - Joint swelling [Unknown]
